FAERS Safety Report 14251871 (Version 2)
Quarter: 2018Q3

REPORT INFORMATION
  Report Type: Report from Study
  Country: BR (occurrence: BR)
  Receive Date: 20171205
  Receipt Date: 20180731
  Transmission Date: 20181010
  Serious: Yes (Hospitalization, Other)
  Sender: FDA-Public Use
  Company Number: BR-ALEXION PHARMACEUTICALS INC.-A201713163

PATIENT
  Age: 5 Year
  Sex: Male
  Weight: 16.8 kg

DRUGS (2)
  1. SOLIRIS [Suspect]
     Active Substance: ECULIZUMAB
     Dosage: 300 MG, EVERY 14 DAYS
     Route: 042
     Dates: start: 20161101
  2. SOLIRIS [Suspect]
     Active Substance: ECULIZUMAB
     Indication: ATYPICAL HAEMOLYTIC URAEMIC SYNDROME
     Dosage: 600 MG, EVERY 7 DAYS
     Route: 042
     Dates: start: 20161024, end: 20161024

REACTIONS (2)
  - Procedural haemorrhage [Recovered/Resolved]
  - Blood creatinine increased [Recovered/Resolved]

NARRATIVE: CASE EVENT DATE: 201711
